FAERS Safety Report 8007439-6 (Version None)
Quarter: 2011Q4

REPORT INFORMATION
  Report Type: 
  Country: None (occurrence: None)
  Receive Date: 20111123
  Receipt Date: 20110913
  Transmission Date: 20120403
  Serious: No
  Sender: FDA-Public Use
  Company Number: 336654

PATIENT
  Age: 67 Year
  Sex: Male

DRUGS (2)
  1. VICTOZA [Suspect]
     Indication: TYPE 2 DIABETES MELLITUS
     Dosage: 1.2 MG,,SUBCUTANEOUS
     Route: 058
     Dates: start: 20110401
  2. VICTOZA [Suspect]
     Dosage: 1.8 MG,QD,SUBCUTANEOUS
     Route: 058

REACTIONS (3)
  - BLOOD GLUCOSE INCREASED [None]
  - WEIGHT DECREASED [None]
  - DECREASED APPETITE [None]
